FAERS Safety Report 5268649-4 (Version None)
Quarter: 2007Q1

REPORT INFORMATION
  Report Type: 
  Country: None (occurrence: None)
  Receive Date: 20061213
  Receipt Date: 20040901
  Transmission Date: 20070707
  Serious: Yes (Other)
  Sender: FDA-Public Use
  Company Number: 2004UW18458

PATIENT
  Age: 75 Year
  Sex: Female
  Weight: 53.5244 kg

DRUGS (5)
  1. IRESSA [Suspect]
     Indication: RENAL CELL CARCINOMA STAGE UNSPECIFIED
     Dosage: 250 MG PO
     Route: 048
  2. NORVASC [Concomitant]
  3. TOPROL-XL [Concomitant]
  4. CALCIUM [Concomitant]
  5. SODIUM BICARBONATE [Concomitant]

REACTIONS (2)
  - BLOOD CREATININE INCREASED [None]
  - OEDEMA PERIPHERAL [None]
